FAERS Safety Report 24716306 (Version 2)
Quarter: 2024Q4

REPORT INFORMATION
  Report Type: Spontaneous
  Country: US (occurrence: US)
  Receive Date: 20241210
  Receipt Date: 20241230
  Transmission Date: 20250115
  Serious: No
  Sender: LEO PHARM
  Company Number: US-LEO Pharma-375806

PATIENT
  Age: 75 Year
  Sex: Female

DRUGS (1)
  1. ADBRY [Suspect]
     Active Substance: TRALOKINUMAB-LDRM
     Indication: Dermatitis atopic
     Dosage: MEDICATION REPORTED AS DISCONTINUED
     Dates: start: 20241015, end: 20241112

REACTIONS (7)
  - Arthralgia [Not Recovered/Not Resolved]
  - Urticaria [Not Recovered/Not Resolved]
  - Vision blurred [Recovering/Resolving]
  - Back pain [Not Recovered/Not Resolved]
  - Pruritus [Not Recovered/Not Resolved]
  - Myalgia [Not Recovered/Not Resolved]
  - Contusion [Recovering/Resolving]

NARRATIVE: CASE EVENT DATE: 20241029
